FAERS Safety Report 5314426-5 (Version None)
Quarter: 2007Q2

REPORT INFORMATION
  Report Type: 
  Country: None (occurrence: None)
  Receive Date: 20070430
  Receipt Date: 20070430
  Transmission Date: 20071010
  Serious: Yes (Hospitalization)
  Sender: FDA-Public Use
  Company Number: None

PATIENT
  Sex: Female
  Weight: 51 kg

DRUGS (7)
  1. VALGANCICLOVIR ROCHE [Suspect]
     Indication: ANTIVIRAL PROPHYLAXIS
     Dosage: 450MG QOD PO
     Route: 048
     Dates: start: 20061219
  2. PLACEBO [Suspect]
  3. TACROLIMUS [Concomitant]
  4. DAPSONE [Concomitant]
  5. ACYCLOVIR [Concomitant]
  6. VORICONAZOLE [Concomitant]
  7. PREDNISONE TAB [Concomitant]

REACTIONS (2)
  - ELECTROCARDIOGRAM T WAVE PEAKED [None]
  - HYPERKALAEMIA [None]
